FAERS Safety Report 7490557-9 (Version None)
Quarter: 2011Q2

REPORT INFORMATION
  Report Type: 
  Country: None (occurrence: None)
  Receive Date: 20110519
  Receipt Date: 20110517
  Transmission Date: 20111010
  Serious: Yes (Hospitalization)
  Sender: FDA-Public Use
  Company Number: AU-SANOFI-AVENTIS-2011SA030325

PATIENT
  Age: 60 Year
  Sex: Male

DRUGS (7)
  1. QUININE SULFATE [Concomitant]
  2. SPIRONOLACTONE [Concomitant]
  3. FUROSEMIDE [Concomitant]
  4. SEREVENT [Concomitant]
     Route: 055
  5. DIGOXIN [Concomitant]
  6. TIOTROPIUM [Concomitant]
  7. INDAPAMIDE [Suspect]
     Route: 048

REACTIONS (3)
  - ALTERED STATE OF CONSCIOUSNESS [None]
  - HYPONATRAEMIA [None]
  - ELECTROLYTE IMBALANCE [None]
